FAERS Safety Report 15615711 (Version 3)
Quarter: 2021Q2

REPORT INFORMATION
  Report Type: Spontaneous
  Country: NL (occurrence: NL)
  Receive Date: 20181114
  Receipt Date: 20210621
  Transmission Date: 20210716
  Serious: Yes (Life-Threatening, Other)
  Sender: FDA-Public Use
  Company Number: NL-AUROBINDO-AUR-APL-2018-054919

PATIENT
  Age: 58 Year
  Sex: Male

DRUGS (2)
  1. MYCOPHENOLATE [Suspect]
     Active Substance: MYCOPHENOLIC ACID
     Indication: DERMATITIS
     Dosage: UNK
     Route: 065
  2. PREDNISONE. [Suspect]
     Active Substance: PREDNISONE
     Indication: DERMATITIS
     Dosage: 1 MILLIGRAM/KILOGRAM, ONCE A DAY
     Route: 065

REACTIONS (4)
  - Condition aggravated [Recovered/Resolved with Sequelae]
  - Dermatitis exfoliative [Unknown]
  - Therapeutic response decreased [Unknown]
  - Product use in unapproved indication [Unknown]
